FAERS Safety Report 15552767 (Version 1)
Quarter: 2018Q4

REPORT INFORMATION
  Report Type: Spontaneous
  Country: US (occurrence: US)
  Receive Date: 20181025
  Receipt Date: 20181025
  Transmission Date: 20190205
  Serious: No
  Sender: FDA-Public Use
  Company Number: US-BAUSCH-BL-2018-007409

PATIENT
  Age: 31 Year
  Sex: Male
  Weight: 90.8 kg

DRUGS (1)
  1. LOTEMAX [Suspect]
     Active Substance: LOTEPREDNOL ETABONATE
     Indication: FOREIGN BODY IN EYE
     Dosage: 1 DROP INTO THE LEFT EYE THREE TO FOUR TIMES A DAY.
     Route: 047
     Dates: start: 20171110, end: 20171113

REACTIONS (3)
  - Ear discomfort [Not Recovered/Not Resolved]
  - Tinnitus [Not Recovered/Not Resolved]
  - Ear disorder [Not Recovered/Not Resolved]

NARRATIVE: CASE EVENT DATE: 20171110
